FAERS Safety Report 9473658 (Version 2)
Quarter: 2013Q3

REPORT INFORMATION
  Report Type: Spontaneous
  Country: US (occurrence: US)
  Receive Date: 20130823
  Receipt Date: 20130823
  Transmission Date: 20140515
  Serious: No
  Sender: FDA-Public Use
  Company Number: US-BRISTOL-MYERS SQUIBB COMPANY-16842338

PATIENT
  Age: 50 Year
  Sex: Female
  Weight: 72.11 kg

DRUGS (1)
  1. SPRYCEL [Suspect]
     Indication: SOFT TISSUE CANCER
     Dosage: STOP FOR A MONTH,RESD, INTD OCT11 FOR 3 DAYS,STOP FOR 2WKS,1DF:1 TAB 100MG
     Dates: start: 201101

REACTIONS (4)
  - Pleural effusion [Recovering/Resolving]
  - Urinary tract infection [Recovering/Resolving]
  - Urticaria [Recovering/Resolving]
  - White blood cell count decreased [Recovering/Resolving]
